FAERS Safety Report 10764563 (Version 1)
Quarter: 2015Q1

REPORT INFORMATION
  Report Type: Report from Study
  Country: AU (occurrence: AU)
  Receive Date: 20150205
  Receipt Date: 20150205
  Transmission Date: 20150721
  Serious: Yes (Other)
  Sender: FDA-Public Use
  Company Number: AU-ROCHE-1530715

PATIENT

DRUGS (3)
  1. RIBAVIRIN. [Suspect]
     Active Substance: RIBAVIRIN
     Indication: CHRONIC HEPATITIS C
     Route: 048
  2. DACLATASVIR [Suspect]
     Active Substance: DACLATASVIR
     Indication: CHRONIC HEPATITIS C
     Route: 048
  3. PEGINTERFERON ALFA-2A [Suspect]
     Active Substance: PEGINTERFERON ALFA-2A
     Indication: CHRONIC HEPATITIS C
     Route: 065

REACTIONS (12)
  - Anaemia [Unknown]
  - Neutropenia [Unknown]
  - Biliary colic [Unknown]
  - Lymphopenia [Unknown]
  - Alanine aminotransferase increased [Unknown]
  - Hyperbilirubinaemia [Unknown]
  - Rash [Unknown]
  - Pruritus [Unknown]
  - Rectal ulcer [Unknown]
  - Hepatocellular carcinoma [Unknown]
  - Thrombocytopenia [Unknown]
  - Gastroenteritis [Unknown]
